FAERS Safety Report 17994111 (Version 1)
Quarter: 2020Q3

REPORT INFORMATION
  Report Type: Spontaneous
  Country: US (occurrence: US)
  Receive Date: 20200707
  Receipt Date: 20200707
  Transmission Date: 20201103
  Serious: Yes (Other)
  Sender: FDA-Public Use
  Company Number: None

PATIENT
  Age: 65 Year
  Sex: Male

DRUGS (1)
  1. BLUMEN HAND SANITIZER FRESH CITRUS [Suspect]
     Active Substance: ALCOHOL
     Indication: INFECTION PROPHYLAXIS
     Route: 061
     Dates: start: 20200707, end: 20200707

REACTIONS (2)
  - Application site erythema [None]
  - Skin erosion [None]

NARRATIVE: CASE EVENT DATE: 20200707
